FAERS Safety Report 4523105-3 (Version None)
Quarter: 2004Q4

REPORT INFORMATION
  Report Type: 
  Country: None (occurrence: None)
  Receive Date: 20041210
  Receipt Date: 20041109
  Transmission Date: 20050328
  Serious: Yes (Hospitalization)
  Sender: FDA-Public Use
  Company Number: PHBS2004FI14982

PATIENT
  Age: 18 Year
  Sex: Male

DRUGS (7)
  1. BENZODIAZEPINES [Concomitant]
     Route: 065
  2. ETHANOL [Concomitant]
     Route: 065
  3. CHARCOAL, ACTIVATED [Suspect]
  4. LORAZEPAM [Suspect]
     Route: 065
  5. LEPONEX [Suspect]
     Indication: DEPRESSION
     Dosage: 200 MG/D
     Route: 048
  6. LEPONEX [Suspect]
     Dosage: UNK, ONCE/SINGLE
     Route: 048
  7. ALCOHOL [Suspect]

REACTIONS (9)
  - CYANOSIS [None]
  - DRUG TOXICITY [None]
  - ELECTROCARDIOGRAM QT PROLONGED [None]
  - HYPOKALAEMIA [None]
  - LOSS OF CONSCIOUSNESS [None]
  - PNEUMONIA ASPIRATION [None]
  - RESTLESSNESS [None]
  - TACHYCARDIA [None]
  - VOMITING [None]
